FAERS Safety Report 4875433-X (Version None)
Quarter: 2006Q1

REPORT INFORMATION
  Report Type: 
  Country: None (occurrence: None)
  Receive Date: 20060105
  Receipt Date: 20051223
  Transmission Date: 20060701
  Serious: Yes (Other)
  Sender: FDA-Public Use
  Company Number: 2005142404

PATIENT
  Sex: Female

DRUGS (12)
  1. LIPITOR [Suspect]
     Indication: ILL-DEFINED DISORDER
     Dosage: (1 IN 1 D), ORAL
     Route: 048
     Dates: start: 19990726
  2. TETRACYCLINE [Suspect]
     Indication: ILL-DEFINED DISORDER
     Dosage: 2000 MG (500 MG, 1 IN 1 D), ORAL
     Route: 048
  3. CIPROFLOXACIN [Suspect]
     Indication: ILL-DEFINED DISORDER
     Dosage: 1000  MG (500 MG, 2 IN 1 D), ORAL
     Route: 048
     Dates: start: 20000602
  4. DEPAKOTE [Suspect]
     Indication: ILL-DEFINED DISORDER
     Dosage: 250 MG (125 MG, 2 IN 1 D), ORAL
     Route: 048
     Dates: start: 20050414
  5. HYDROCHLOROTHIAZIDE/TRIAMTERENE (HYDROCHLOROTHIAZIED, TRIAMTEREN) [Concomitant]
  6. MULTIVITAMIN [Concomitant]
  7. LISINOPRIL W/HYDROCHLOROTHIAZIDE (HYDROCHLOROTHIAZIDE, LISINOPRIL) [Concomitant]
  8. TOLAZAMIDE (TOLAZAMIDE) [Concomitant]
  9. ATENOLOL [Concomitant]
  10. ASPIRIN [Concomitant]
  11. VITAMIN C (VITAMIN C) [Concomitant]
  12. VITAMINE E (VITAMINE E) [Concomitant]

REACTIONS (22)
  - ALANINE AMINOTRANSFERASE DECREASED [None]
  - ANTICONVULSANT DRUG LEVEL BELOW THERAPEUTIC [None]
  - ASPARTATE AMINOTRANSFERASE INCREASED [None]
  - CHOLELITHIASIS [None]
  - COUGH [None]
  - DIARRHOEA [None]
  - GASTROOESOPHAGEAL REFLUX DISEASE [None]
  - HYPERLIPIDAEMIA [None]
  - MASS [None]
  - MYOPATHY [None]
  - NAUSEA [None]
  - OEDEMA PERIPHERAL [None]
  - OSTEOARTHRITIS [None]
  - OSTEOPOROSIS [None]
  - PAIN [None]
  - PROTEIN TOTAL DECREASED [None]
  - PROTEIN URINE PRESENT [None]
  - RED BLOOD CELL COUNT DECREASED [None]
  - RED CELL DISTRIBUTION WIDTH INCREASED [None]
  - RENAL FAILURE [None]
  - URINARY SEDIMENT PRESENT [None]
  - WHITE BLOOD CELLS URINE POSITIVE [None]
